FAERS Safety Report 6077954-3 (Version None)
Quarter: 2009Q1

REPORT INFORMATION
  Report Type: 
  Country: None (occurrence: None)
  Receive Date: 20090211
  Receipt Date: 20090120
  Transmission Date: 20090719
  Serious: No
  Sender: FDA-Public Use
  Company Number: 14454250

PATIENT
  Age: 38 Year
  Sex: Male

DRUGS (4)
  1. NALTREXONE HYDROCHLORIDE [Suspect]
     Dosage: ORAL
     Route: 048
  2. MIRTAZAPINE [Suspect]
     Indication: DEPRESSED MOOD
  3. METHADONE HCL [Suspect]
     Indication: DETOXIFICATION
     Dosage: 1 DOSAGE FORM
     Dates: start: 20081004
  4. ALCOHOL [Suspect]

REACTIONS (10)
  - ABDOMINAL PAIN UPPER [None]
  - DIARRHOEA [None]
  - DRUG INTERACTION [None]
  - DYSPNOEA [None]
  - EPILEPSY [None]
  - MUSCLE SPASMS [None]
  - MUSCLE TWITCHING [None]
  - PAIN IN EXTREMITY [None]
  - PUPIL FIXED [None]
  - VOMITING PROJECTILE [None]
